FAERS Safety Report 24967246 (Version 1)
Quarter: 2025Q1

REPORT INFORMATION
  Report Type: Spontaneous
  Country: JP (occurrence: JP)
  Receive Date: 20250213
  Receipt Date: 20250213
  Transmission Date: 20250409
  Serious: Yes (Death, Other)
  Sender: SANOFI AVENTIS
  Company Number: JP-SAKK-2025SA042191AA

PATIENT
  Age: 50 Year
  Sex: Male

DRUGS (3)
  1. TAXOTERE [Suspect]
     Active Substance: DOCETAXEL
     Indication: Oesophageal carcinoma
     Route: 041
  2. FLUOROURACIL [Concomitant]
     Active Substance: FLUOROURACIL
     Indication: Oesophageal carcinoma
     Route: 065
  3. CISPLATIN [Concomitant]
     Active Substance: CISPLATIN
     Indication: Oesophageal carcinoma
     Route: 065

REACTIONS (8)
  - Acute myeloid leukaemia [Fatal]
  - Malaise [Fatal]
  - Pyrexia [Fatal]
  - Epistaxis [Fatal]
  - Haemorrhage [Fatal]
  - Disseminated intravascular coagulation [Fatal]
  - Cardiac failure congestive [Fatal]
  - Pneumonia [Fatal]
